FAERS Safety Report 8576449 (Version 3)
Quarter: 2012Q4

REPORT INFORMATION
  Report Type: 
  Country: JP (occurrence: JP)
  Receive Date: 20120523
  Receipt Date: 20120910
  Transmission Date: 20130627
  Serious: Yes (Hospitalization)
  Sender: FDA-Public Use
  Company Number: PHHY2012JP043877

PATIENT
  Age: 54 Year
  Sex: Male

DRUGS (9)
  1. NEORAL [Suspect]
     Indication: RENAL TRANSPLANT
     Dosage: 110 mg, daily
     Route: 048
  2. SIMULECT [Suspect]
     Indication: RENAL TRANSPLANT
  3. CELLCEPT [Suspect]
     Indication: RENAL TRANSPLANT
     Dosage: 1 g, UNK
     Route: 048
  4. PREDONINE [Suspect]
     Indication: RENAL TRANSPLANT
     Dosage: 5 mg, UNK
     Route: 048
  5. NORVASC [Concomitant]
     Dosage: 5 mg, UNK
     Route: 048
  6. ALTAT [Concomitant]
     Dosage: 75 mg, UNK
     Route: 048
  7. ZYLORIC [Concomitant]
     Dosage: 100 mg, UNK
     Route: 048
  8. BLOPRESS [Concomitant]
     Dosage: 8 mg, UNK
     Route: 048
  9. LIPITOR [Concomitant]
     Dosage: 10 mg, UNK
     Route: 048

REACTIONS (3)
  - Diabetes mellitus [Recovering/Resolving]
  - Glucose tolerance impaired [Unknown]
  - Schwannoma [Recovered/Resolved]
